FAERS Safety Report 21877489 (Version 5)
Quarter: 2023Q1

REPORT INFORMATION
  Report Type: Spontaneous
  Country: None (occurrence: PL)
  Receive Date: 20230118
  Receipt Date: 20230222
  Transmission Date: 20230418
  Serious: Yes (Hospitalization, Other)
  Sender: FDA-Public Use
  Company Number: PL-Therakind Limited-2136824

PATIENT
  Sex: Male

DRUGS (8)
  1. METHOTREXATE [Suspect]
     Active Substance: METHOTREXATE
     Indication: Ankylosing spondylitis
  2. SULFASALAZINE [Suspect]
     Active Substance: SULFASALAZINE
  3. TRIAMCINOLON [Concomitant]
  4. ADALIMUMAB [Concomitant]
     Active Substance: ADALIMUMAB
  5. ETANERCEPT [Concomitant]
     Active Substance: ETANERCEPT
  6. DEXAMETHASONE [Suspect]
     Active Substance: DEXAMETHASONE
  7. PREDNISONE [Suspect]
     Active Substance: PREDNISONE
     Route: 048
  8. TROPICAMIDE [Suspect]
     Active Substance: TROPICAMIDE
     Route: 047

REACTIONS (6)
  - Drug ineffective [Unknown]
  - Off label use [Unknown]
  - Uveitis [Recovered/Resolved]
  - Visual impairment [Recovered/Resolved]
  - Cataract [Unknown]
  - Herpes ophthalmic [Unknown]
